FAERS Safety Report 19362220 (Version 3)
Quarter: 2022Q2

REPORT INFORMATION
  Report Type: Report from Study
  Country: PA (occurrence: PA)
  Receive Date: 20210601
  Receipt Date: 20220606
  Transmission Date: 20220720
  Serious: Yes (Other)
  Sender: FDA-Public Use
  Company Number: NVSC2021PA118078

PATIENT
  Age: 60 Year
  Sex: Female
  Weight: 67 kg

DRUGS (4)
  1. KISQALI [Suspect]
     Active Substance: RIBOCICLIB
     Indication: Bone cancer
     Dosage: 400 MG, QD (2 TABLETS OF 200 MG)
     Route: 048
     Dates: start: 20201001
  2. KISQALI [Suspect]
     Active Substance: RIBOCICLIB
     Indication: Breast cancer metastatic
     Dosage: 3 DF, QD (3 TABLETS DAILY)
     Route: 048
     Dates: start: 202010
  3. KISQALI [Suspect]
     Active Substance: RIBOCICLIB
     Indication: Metastases to spine
     Dosage: 400 MG, QD (2 TABLETS OF 200 MG)
     Route: 048
     Dates: start: 20201001, end: 202205
  4. ANASTROZOLE [Suspect]
     Active Substance: ANASTROZOLE
     Indication: Metastases to spine
     Dosage: 1 DF, QD (1 SMALL TABLET)
     Route: 048
     Dates: start: 202010

REACTIONS (9)
  - Breast cancer metastatic [Unknown]
  - Malignant neoplasm progression [Unknown]
  - Gait disturbance [Recovered/Resolved]
  - Peripheral swelling [Recovered/Resolved]
  - Skin discolouration [Unknown]
  - Spinal pain [Unknown]
  - Gait disturbance [Unknown]
  - Rash macular [Recovering/Resolving]
  - Product use in unapproved indication [Unknown]

NARRATIVE: CASE EVENT DATE: 20201001
